FAERS Safety Report 22353545 (Version 11)
Quarter: 2025Q4

REPORT INFORMATION
  Report Type: Report from Study
  Country: CA (occurrence: CA)
  Receive Date: 20230523
  Receipt Date: 20251103
  Transmission Date: 20260118
  Serious: Yes (Other)
  Sender: TAKEDA
  Company Number: CA-TAKEDA-2023TUS019326

PATIENT
  Age: 59 Year
  Sex: Female

DRUGS (10)
  1. VEDOLIZUMAB [Suspect]
     Active Substance: VEDOLIZUMAB
     Indication: Colitis ulcerative
     Dosage: 300 MILLIGRAM
  2. VEDOLIZUMAB [Suspect]
     Active Substance: VEDOLIZUMAB
     Dosage: 300 MILLIGRAM, Q4WEEKS
     Dates: start: 20240806
  3. VEDOLIZUMAB [Suspect]
     Active Substance: VEDOLIZUMAB
     Dosage: 300 MILLIGRAM, Q4WEEKS
  4. VEDOLIZUMAB [Suspect]
     Active Substance: VEDOLIZUMAB
     Dosage: 300 MILLIGRAM, Q4WEEKS
  5. VEDOLIZUMAB [Suspect]
     Active Substance: VEDOLIZUMAB
     Dosage: 300 MILLIGRAM, Q4WEEKS
  6. VEDOLIZUMAB [Suspect]
     Active Substance: VEDOLIZUMAB
     Dosage: 300 MILLIGRAM, Q4WEEKS
  7. VEDOLIZUMAB [Suspect]
     Active Substance: VEDOLIZUMAB
     Dosage: 300 MILLIGRAM, Q4WEEKS
  8. AMOXICILLIN [Suspect]
     Active Substance: AMOXICILLIN
     Indication: Cystitis
     Dosage: 250 MILLIGRAM, TID
     Dates: start: 20250121
  9. AMOXICILLIN [Suspect]
     Active Substance: AMOXICILLIN
     Dosage: 500 MILLIGRAM, TID
     Dates: start: 20250127
  10. IMURAN [Concomitant]
     Active Substance: AZATHIOPRINE
     Dosage: 150 MILLIGRAM

REACTIONS (13)
  - Colitis ulcerative [Recovering/Resolving]
  - Off label use [Unknown]
  - Loss of therapeutic response [Unknown]
  - Myalgia [Unknown]
  - Product dose omission issue [Unknown]
  - Malaise [Recovering/Resolving]
  - Urinary tract infection [Recovering/Resolving]
  - Back pain [Unknown]
  - Nasopharyngitis [Unknown]
  - Fatigue [Unknown]
  - Pyrexia [Unknown]
  - Abdominal discomfort [Unknown]
  - Cystitis [Recovered/Resolved]

NARRATIVE: CASE EVENT DATE: 20230501
